FAERS Safety Report 13748592 (Version 3)
Quarter: 2017Q3

REPORT INFORMATION
  Report Type: Report from Study
  Country: GT (occurrence: GT)
  Receive Date: 20170713
  Receipt Date: 20170728
  Transmission Date: 20171127
  Serious: Yes (Death)
  Sender: FDA-Public Use
  Company Number: PHHY2017GT103104

PATIENT
  Age: 95 Year
  Sex: Female
  Weight: 56.2 kg

DRUGS (5)
  1. RISPERDAL [Concomitant]
     Active Substance: RISPERIDONE
     Indication: PRODUCT USED FOR UNKNOWN INDICATION
     Route: 065
  2. ASPIRIN. [Concomitant]
     Active Substance: ASPIRIN
     Indication: PRODUCT USED FOR UNKNOWN INDICATION
     Dosage: 100 MG, UNK
     Route: 065
  3. EXELON PATCH [Suspect]
     Active Substance: RIVASTIGMINE
     Indication: SENILE DEMENTIA
     Dosage: 13.3 MG, QD PATCH 15 (CM2) (FROM 2 YEARS AGO)
     Route: 062
     Dates: start: 2015, end: 20170628
  4. SEROQUEL [Concomitant]
     Active Substance: QUETIAPINE FUMARATE
     Indication: DEPRESSION
     Dosage: 300 MG, QD
     Route: 065
  5. AKATINOL [Concomitant]
     Indication: PRODUCT USED FOR UNKNOWN INDICATION
     Route: 065

REACTIONS (6)
  - Dyspnoea [Fatal]
  - Pneumonia [Fatal]
  - Productive cough [Fatal]
  - Gait disturbance [Unknown]
  - Product use in unapproved indication [Recovered/Resolved]
  - Cough [Fatal]

NARRATIVE: CASE EVENT DATE: 2015
